FAERS Safety Report 5457112-3 (Version None)
Quarter: 2007Q3

REPORT INFORMATION
  Report Type: 
  Country: None (occurrence: None)
  Receive Date: 20070918
  Receipt Date: 20070112
  Transmission Date: 20080115
  Serious: Yes (Other)
  Sender: FDA-Public Use
  Company Number: US-ASTRAZENECA-2007UW00728

PATIENT
  Age: 56 Year
  Sex: Female

DRUGS (3)
  1. SEROQUEL [Suspect]
     Dosage: 2 -3 TABLETS
     Route: 048
     Dates: start: 20060801
  2. PAXIL [Concomitant]
  3. ABILIFY [Concomitant]
     Dates: start: 20060501

REACTIONS (1)
  - TARDIVE DYSKINESIA [None]
